FAERS Safety Report 21962101 (Version 1)
Quarter: 2023Q1

REPORT INFORMATION
  Report Type: Report from Study
  Country: US (occurrence: US)
  Receive Date: 20230207
  Receipt Date: 20230207
  Transmission Date: 20230418
  Serious: Yes (Other)
  Sender: FDA-Public Use
  Company Number: US-ORG100014127-2022001007

PATIENT
  Age: 65 Year
  Sex: Female

DRUGS (11)
  1. LYSODREN [Suspect]
     Active Substance: MITOTANE
     Indication: Adrenal gland cancer
     Dosage: TITRATED FROM 1000 MG/DAY, 1500 MG/DAY, 3000 MG/DAY; EACH FOR 02 WEEKS
     Route: 048
     Dates: start: 20220830
  2. LYSODREN [Suspect]
     Active Substance: MITOTANE
     Indication: Adrenal gland cancer
     Route: 048
     Dates: start: 202209
  3. LYSODREN [Suspect]
     Active Substance: MITOTANE
     Indication: Adrenal gland cancer
     Dosage: 04 TABLETS TID
     Route: 048
     Dates: start: 2022
  4. CRESTOR TAB 20MG [Concomitant]
     Indication: Product used for unknown indication
  5. HYDROCORT TAB 5MG [Concomitant]
     Indication: Product used for unknown indication
  6. Atorvastatin tab 20 mg [Concomitant]
     Indication: Product used for unknown indication
  7. Famotidine tab 40 mg [Concomitant]
     Indication: Product used for unknown indication
  8. Lansoprazole cap 30 mg dr [Concomitant]
     Indication: Product used for unknown indication
  9. Synthroid tab 50mcg [Concomitant]
     Indication: Product used for unknown indication
  10. Verapamil tab 240 mg er [Concomitant]
     Indication: Product used for unknown indication
  11. Vitamin D cap 1.25 mg [Concomitant]
     Indication: Product used for unknown indication

REACTIONS (4)
  - Adrenal insufficiency [Unknown]
  - Rash pruritic [Recovered/Resolved]
  - Fatigue [Unknown]
  - Nausea [Unknown]

NARRATIVE: CASE EVENT DATE: 20220101
